FAERS Safety Report 16316114 (Version 2)
Quarter: 2020Q1

REPORT INFORMATION
  Report Type: Spontaneous
  Country: US (occurrence: US)
  Receive Date: 20190515
  Receipt Date: 20200116
  Transmission Date: 20200409
  Serious: No
  Sender: FDA-Public Use
  Company Number: US-SA-2019SA128015

PATIENT
  Age: 50 Year
  Sex: Female

DRUGS (6)
  1. WELLBUTRIN [Concomitant]
     Active Substance: BUPROPION HYDROCHLORIDE
  2. DUPIXENT [Suspect]
     Active Substance: DUPILUMAB
     Indication: DERMATITIS ATOPIC
     Dosage: 300 MG, QOW
     Route: 058
     Dates: start: 20181229, end: 201912
  3. METOPROLOL. [Concomitant]
     Active Substance: METOPROLOL
  4. ELIDEL [Concomitant]
     Active Substance: PIMECROLIMUS
  5. CLOBETASOL [Concomitant]
     Active Substance: CLOBETASOL
  6. LYSINE [Concomitant]
     Active Substance: LYSINE

REACTIONS (3)
  - Injection site erythema [Not Recovered/Not Resolved]
  - Dermatitis atopic [Not Recovered/Not Resolved]
  - Product dose omission [Unknown]

NARRATIVE: CASE EVENT DATE: 20190503
